FAERS Safety Report 8484613-6 (Version None)
Quarter: 2012Q3

REPORT INFORMATION
  Report Type: 
  Country: None (occurrence: None)
  Receive Date: 20120703
  Receipt Date: 20120516
  Transmission Date: 20120928
  Serious: No
  Sender: FDA-Public Use
  Company Number: US-TEVA-338939USA

PATIENT
  Sex: Female
  Weight: 81.72 kg

DRUGS (8)
  1. HYDROCHLOROTHIAZDE TAB [Concomitant]
  2. FISH OIL [Concomitant]
  3. NUVIGIL [Suspect]
     Indication: SOMNOLENCE
     Route: 048
  4. IRON [Concomitant]
  5. BIOTIN [Concomitant]
  6. ERGOCALCIFEROL [Concomitant]
  7. RABEPRAZOLE SODIUM [Concomitant]
     Indication: GASTROOESOPHAGEAL REFLUX DISEASE
  8. MULTI-VITAMINS [Concomitant]

REACTIONS (3)
  - DRUG INEFFECTIVE [None]
  - OFF LABEL USE [None]
  - SOMNOLENCE [None]
